FAERS Safety Report 26083883 (Version 1)
Quarter: 2025Q4

REPORT INFORMATION
  Report Type: Spontaneous
  Country: CN (occurrence: CN)
  Receive Date: 20251124
  Receipt Date: 20251124
  Transmission Date: 20260118
  Serious: Yes (Other)
  Sender: B. BRAUN MEDICAL INC.
  Company Number: CN-B. Braun Medical Inc.-CN-BBM-202503111

PATIENT
  Age: 34 Year
  Sex: Female
  Weight: 49.1 kg

DRUGS (3)
  1. METRONIDAZOLE [Interacting]
     Active Substance: METRONIDAZOLE
     Indication: Infection
  2. METRONIDAZOLE [Interacting]
     Active Substance: METRONIDAZOLE
  3. TACROLIMUS [Interacting]
     Active Substance: TACROLIMUS
     Indication: Renal transplant

REACTIONS (2)
  - Drug interaction [Unknown]
  - Drug level increased [Unknown]
